FAERS Safety Report 22532044 (Version 1)
Quarter: 2023Q2

REPORT INFORMATION
  Report Type: Spontaneous
  Country: US (occurrence: US)
  Receive Date: 20230607
  Receipt Date: 20230607
  Transmission Date: 20230722
  Serious: Yes (Other)
  Sender: FDA-Public Use
  Company Number: US-PFIZER INC-202300209272

PATIENT
  Age: 47 Year
  Sex: Male
  Weight: 63.5 kg

DRUGS (2)
  1. OXBRYTA [Suspect]
     Active Substance: VOXELOTOR
     Indication: Sickle cell anaemia
     Dosage: 1500 MG, DAILY (THREE TABLETS PER DAY AT 4:00PM)
  2. OXYCODONE [Concomitant]
     Active Substance: OXYCODONE
     Indication: Pain
     Dosage: 20 MG, AS NEEDED [10MG TABLET, TAKES TWO AS NEEDED FOR PAIN EVERY 4-6 HOURS]

REACTIONS (1)
  - Sickle cell anaemia with crisis [Unknown]
